FAERS Safety Report 9734609 (Version 1)
Quarter: 2013Q4

REPORT INFORMATION
  Report Type: Report from Study
  Country: US (occurrence: US)
  Receive Date: 20131206
  Receipt Date: 20131206
  Transmission Date: 20140711
  Serious: Yes (Hospitalization)
  Sender: FDA-Public Use
  Company Number: US-ROCHE-1309747

PATIENT
  Age: 37 Year
  Sex: Female
  Weight: 76.91 kg

DRUGS (2)
  1. SOMATROPIN [Suspect]
     Indication: GROWTH HORMONE DEFICIENCY
     Route: 058
  2. ALLEGRA [Concomitant]
     Indication: PRURITUS
     Dosage: PRN
     Route: 048

REACTIONS (9)
  - Renal stone removal [Recovered/Resolved]
  - Insomnia [Not Recovered/Not Resolved]
  - Weight increased [Unknown]
  - Fatigue [Not Recovered/Not Resolved]
  - Injection site pain [Not Recovered/Not Resolved]
  - Nausea [Recovered/Resolved]
  - Pruritus [Unknown]
  - Vitamin B1 deficiency [Unknown]
  - Abdominal pain [Recovered/Resolved]
